FAERS Safety Report 10415414 (Version 1)
Quarter: 2014Q1

REPORT INFORMATION
  Report Type: Spontaneous
  Country: US (occurrence: None)
  Receive Date: 20130507
  Receipt Date: 20130507
  Transmission Date: 20141002
  Serious: No
  Sender: FDA-Public Use
  Company Number: PHEH2013US000870

PATIENT
  Sex: Male

DRUGS (11)
  1. AFINITOR (RAD) [Suspect]
     Indication: RENAL CANCER
     Dates: start: 2012
  2. AFINITOR (RAD) [Suspect]
     Indication: METASTASES TO LUNG
     Dates: start: 2012
  3. PROTONIX (PANTOPRAZOLE SODIUM SESQUIHYDRATE) [Concomitant]
  4. ASPIRIN (ACETYLSALICYLIC ACID) [Concomitant]
  5. MORPHINE (MORPHINE) [Concomitant]
  6. DULCOLAX (BISACODYL) [Concomitant]
  7. ZOFRAN (ONDANSETRON HYDROCHLORIDE) [Concomitant]
  8. ALFUZOOSIN (ALFUZOSIN) [Concomitant]
  9. AVODART (DUTASTERIDE) [Concomitant]
  10. CYMBALTA (DULOXETINE HYDROCHLORIDE) [Concomitant]
  11. NORCO (HYDROCODONE BITARTRATE, PARACETAMOL) [Concomitant]

REACTIONS (1)
  - Drug hypersensitivity [None]
